FAERS Safety Report 13200681 (Version 5)
Quarter: 2018Q1

REPORT INFORMATION
  Report Type: Report from Study
  Country: US (occurrence: US)
  Receive Date: 20170209
  Receipt Date: 20180321
  Transmission Date: 20180508
  Serious: Yes (Other)
  Sender: FDA-Public Use
  Company Number: PHHY2017US018499

PATIENT
  Sex: Female
  Weight: 2.7 kg

DRUGS (1)
  1. GILENYA [Suspect]
     Active Substance: FINGOLIMOD HYDROCHLORIDE
     Indication: FOETAL EXPOSURE DURING PREGNANCY
     Dosage: MATERNAL DOSE: NOT PROVIDED
     Route: 064

REACTIONS (2)
  - Foetal exposure during pregnancy [Unknown]
  - Single umbilical artery [Unknown]

NARRATIVE: CASE EVENT DATE: 201603
